FAERS Safety Report 8103027-1 (Version None)
Quarter: 2012Q1

REPORT INFORMATION
  Report Type: 
  Country: None (occurrence: None)
  Receive Date: 20120201
  Receipt Date: 20120201
  Transmission Date: 20120608
  Serious: Yes (Other)
  Sender: FDA-Public Use
  Company Number: None

PATIENT
  Age: 62 Year
  Sex: Male
  Weight: 73.935 kg

DRUGS (2)
  1. ALPRAZOLAM [Suspect]
     Indication: INTERVERTEBRAL DISC PROTRUSION
     Dates: start: 20120106, end: 20120129
  2. ALPRAZOLAM [Suspect]
     Indication: MUSCLE RELAXANT THERAPY
     Dates: start: 20120106, end: 20120129

REACTIONS (3)
  - PRODUCT SUBSTITUTION ISSUE [None]
  - DRUG EFFECT DECREASED [None]
  - ABDOMINAL PAIN [None]
